FAERS Safety Report 26129586 (Version 1)
Quarter: 2025Q4

REPORT INFORMATION
  Report Type: Spontaneous
  Country: EU (occurrence: EU)
  Receive Date: 20251208
  Receipt Date: 20251208
  Transmission Date: 20260117
  Serious: Yes (Death, Other)
  Sender: AUROBINDO
  Company Number: EU-AFSSAPS-CN2025001313

PATIENT
  Age: 67 Year
  Sex: Male

DRUGS (4)
  1. PIPERACILLIN AND TAZOBACTAM [Suspect]
     Active Substance: PIPERACILLIN SODIUM\TAZOBACTAM SODIUM
     Indication: Infection
     Dosage: 8 GRAM, ONCE A DAY (4 G TOUTES LES 12H)
     Dates: start: 20240816, end: 20240821
  2. AMIKACIN [Concomitant]
     Active Substance: AMIKACIN
     Indication: Infection
     Dosage: 2700 MILLIGRAM, ONCE A DAY
     Dates: start: 20240816, end: 20240816
  3. AMIKACIN [Concomitant]
     Active Substance: AMIKACIN
     Dosage: 1750 MILLIGRAM, ONCE A DAY
     Dates: start: 20240820, end: 20240820
  4. ERYTHROMYCIN [Concomitant]
     Active Substance: ERYTHROMYCIN
     Indication: Infection
     Dosage: 750 MILLIGRAM, ONCE A DAY (250MG*3/J)
     Dates: start: 20240815, end: 20240820

REACTIONS (2)
  - Septic shock [Fatal]
  - Drug level below therapeutic [Fatal]

NARRATIVE: CASE EVENT DATE: 20240821
